FAERS Safety Report 5050939-1 (Version None)
Quarter: 2006Q3

REPORT INFORMATION
  Report Type: 
  Country: None (occurrence: None)
  Receive Date: 20060710
  Receipt Date: 20060620
  Transmission Date: 20061208
  Serious: Yes (Other)
  Sender: FDA-Public Use
  Company Number: S06-CAN-02522-01

PATIENT
  Age: 58 Year
  Sex: Male

DRUGS (6)
  1. TIAZAC [Suspect]
     Indication: HYPERTENSION
     Dates: start: 20050401
  2. TELMISARTAN [Concomitant]
  3. RANITIDINE [Concomitant]
  4. COMBIVENT (ALBUTEROL/IPRATROPIUM) [Concomitant]
  5. SALMETEROL XINAFOATE [Concomitant]
  6. FLUTICASONE PROPIONATE [Concomitant]

REACTIONS (2)
  - FATIGUE [None]
  - HEART RATE DECREASED [None]
